FAERS Safety Report 15819597 (Version 3)
Quarter: 2019Q1

REPORT INFORMATION
  Report Type: Spontaneous
  Country: IT (occurrence: IT)
  Receive Date: 20190114
  Receipt Date: 20190208
  Transmission Date: 20190417
  Serious: Yes (Hospitalization)
  Sender: FDA-Public Use
  Company Number: IT-B.I. PHARMACEUTICALS,INC./RIDGEFIELD-2019-12-000144

PATIENT
  Age: 77 Year
  Sex: Female
  Weight: 74 kg

DRUGS (2)
  1. LOBIVON [Concomitant]
     Active Substance: NEBIVOLOL HYDROCHLORIDE
     Indication: HYPERTENSION
     Dosage: COMPRESSE
     Route: 048
  2. MICARDIS PLUS [Suspect]
     Active Substance: HYDROCHLOROTHIAZIDE\TELMISARTAN
     Indication: HYPERTENSION
     Dosage: 80 MG/12.5 MG
     Route: 048
     Dates: start: 20080101, end: 20181001

REACTIONS (1)
  - Skin squamous cell carcinoma metastatic [Recovered/Resolved]

NARRATIVE: CASE EVENT DATE: 20140101
